FAERS Safety Report 7954475-1 (Version None)
Quarter: 2011Q4

REPORT INFORMATION
  Report Type: 
  Country: None (occurrence: None)
  Receive Date: 20111202
  Receipt Date: 20111129
  Transmission Date: 20120403
  Serious: Yes (Death)
  Sender: FDA-Public Use
  Company Number: US-CELGENEUS-163-21880-11062190

PATIENT
  Sex: Female

DRUGS (10)
  1. LASIX [Concomitant]
     Route: 065
  2. REVLIMID [Suspect]
     Dosage: 5 MILLIGRAM
     Route: 048
     Dates: start: 20100511, end: 20110101
  3. CRESTOR [Concomitant]
     Route: 065
  4. BENAZEPRIL HYDROCHLORIDE [Concomitant]
     Route: 065
  5. ACTOS [Concomitant]
     Route: 065
  6. REVLIMID [Suspect]
     Dosage: 5 MILLIGRAM
     Route: 048
     Dates: start: 20110301, end: 20110101
  7. WARFARIN SODIUM [Concomitant]
     Route: 065
  8. NORVASC [Concomitant]
     Route: 065
  9. CARDIZEM CD [Concomitant]
     Route: 065
  10. CALCIUM +D [Concomitant]
     Route: 065

REACTIONS (2)
  - METABOLIC ACIDOSIS [None]
  - GANGRENE [None]
